FAERS Safety Report 4394147-6 (Version None)
Quarter: 2004Q3

REPORT INFORMATION
  Report Type: 
  Country: None (occurrence: None)
  Receive Date: 20040708
  Receipt Date: 20040708
  Transmission Date: 20050211
  Serious: Yes (Death)
  Sender: FDA-Public Use
  Company Number: None

PATIENT
  Age: 73 Year
  Sex: Male

DRUGS (2)
  1. GEMZAR [Suspect]
     Indication: PANCREATIC CARCINOMA METASTATIC
     Dosage: 1000 MG/M2 = 1740 MG IV
     Route: 042
     Dates: start: 20040517
  2. OXALIPLATION [Suspect]
     Indication: PANCREATIC CARCINOMA METASTATIC
     Dosage: 100 MG/M2 =174 MG IV
     Route: 042
     Dates: start: 20040518

REACTIONS (1)
  - COLONIC OBSTRUCTION [None]
